FAERS Safety Report 8488382-5 (Version None)
Quarter: 2012Q3

REPORT INFORMATION
  Report Type: 
  Country: None (occurrence: None)
  Receive Date: 20120705
  Receipt Date: 20120627
  Transmission Date: 20120928
  Serious: Yes (Hospitalization)
  Sender: FDA-Public Use
  Company Number: US-BAYER-2012-004103

PATIENT
  Age: 19 Year
  Sex: Female
  Weight: 74.83 kg

DRUGS (7)
  1. YAZ [Suspect]
     Indication: CONTRACEPTION
     Dosage: UNK
     Dates: start: 20070901, end: 20090601
  2. VICODIN ES [Concomitant]
  3. PROTONIX [Concomitant]
  4. VICODIN [Concomitant]
     Indication: PAIN
     Dosage: ONE EVERY 4 HOURS
  5. NUVARING [Concomitant]
     Indication: CONTRACEPTION
     Dosage: UNK
     Dates: start: 20090601
  6. REGLAN [Concomitant]
  7. YAZ [Suspect]
     Indication: PREMENSTRUAL SYNDROME

REACTIONS (11)
  - CHOLECYSTITIS CHRONIC [None]
  - INJURY [None]
  - PANCREATITIS ACUTE [None]
  - DYSPEPSIA [None]
  - SWELLING [None]
  - PAIN [None]
  - GENERAL PHYSICAL HEALTH DETERIORATION [None]
  - ANXIETY [None]
  - EMOTIONAL DISTRESS [None]
  - CHOLELITHIASIS [None]
  - BILE DUCT OBSTRUCTION [None]
